FAERS Safety Report 8462066-1 (Version None)
Quarter: 2012Q2

REPORT INFORMATION
  Report Type: 
  Country: None (occurrence: None)
  Receive Date: 20120625
  Receipt Date: 20120618
  Transmission Date: 20120825
  Serious: Yes (Hospitalization)
  Sender: FDA-Public Use
  Company Number: US-BAYER-2012-060809

PATIENT
  Age: 19 Year
  Sex: Female
  Weight: 111 kg

DRUGS (8)
  1. DROSPIRENONE AND ETHINYL ESTRADIOL [Suspect]
  2. CITALOPRAM HYDROBROMIDE [Concomitant]
     Dosage: 20 MG, UNK
     Dates: start: 20111126
  3. AZITHROMYCIN [Concomitant]
     Dosage: UNK
     Dates: start: 20111203
  4. MYCOLOG [Concomitant]
     Dosage: UNK
     Dates: start: 20111203
  5. VITAMINS NOS [Concomitant]
  6. ALBUTEROL [Concomitant]
     Indication: COUGH
  7. YAZ [Suspect]
  8. CELEXA [Concomitant]
     Dosage: UNK
     Dates: start: 20111203

REACTIONS (1)
  - PULMONARY EMBOLISM [None]
